FAERS Safety Report 19247901 (Version 4)
Quarter: 2021Q3

REPORT INFORMATION
  Report Type: Report from Study
  Country: US (occurrence: US)
  Receive Date: 20210512
  Receipt Date: 20210705
  Transmission Date: 20211014
  Serious: No
  Sender: FDA-Public Use
  Company Number: US-TAKEDA-2021TUS029328

PATIENT
  Sex: Female
  Weight: 104 kg

DRUGS (6)
  1. ZYPREXA [Concomitant]
     Active Substance: OLANZAPINE
     Indication: SLEEP DISORDER
     Dosage: 5 MILLIGRAM, QD
     Route: 065
  2. LAMICTAL [Concomitant]
     Active Substance: LAMOTRIGINE
     Indication: EPILEPSY
     Dosage: UNK
     Route: 065
  3. VORTIOXETINE. [Suspect]
     Active Substance: VORTIOXETINE
     Indication: MAJOR DEPRESSION
     Dosage: 20 MILLIGRAM, QD
     Route: 065
  4. KLONOPIN [Concomitant]
     Active Substance: CLONAZEPAM
     Dosage: UNK
     Route: 065
  5. KEPPRA [Concomitant]
     Active Substance: LEVETIRACETAM
     Indication: EPILEPSY
     Dosage: UNK
     Route: 065
  6. VORTIOXETINE. [Suspect]
     Active Substance: VORTIOXETINE
     Indication: BIPOLAR DISORDER
     Dosage: 10 MILLIGRAM
     Route: 065

REACTIONS (3)
  - Off label use [Unknown]
  - Malabsorption from administration site [Unknown]
  - Drug ineffective [Unknown]
